FAERS Safety Report 7745985-0 (Version None)
Quarter: 2011Q3

REPORT INFORMATION
  Report Type: 
  Country: None (occurrence: None)
  Receive Date: 20110913
  Receipt Date: 20110831
  Transmission Date: 20111222
  Serious: Yes (Hospitalization)
  Sender: FDA-Public Use
  Company Number: US-BAYER-2011-083365

PATIENT
  Age: 39 Year
  Sex: Female
  Weight: 91 kg

DRUGS (11)
  1. NITROFURANTOIN [Concomitant]
     Dosage: UNK UNK, BID
     Route: 048
     Dates: start: 20080813
  2. NAPROXENO [Concomitant]
  3. AMBIEN CR [Concomitant]
     Indication: INSOMNIA
     Dosage: 12.5 MG, HS
     Route: 048
     Dates: start: 20040101
  4. CLARITIN [Concomitant]
     Indication: MULTIPLE ALLERGIES
     Dosage: UNK UNK, QD
     Dates: start: 20000101, end: 20100101
  5. YAZ [Suspect]
     Indication: PRODUCT USED FOR UNKNOWN INDICATION
     Dosage: UNK
     Dates: start: 20080601, end: 20080901
  6. NAPROXEN (ALEVE) [Concomitant]
     Indication: BACK PAIN
     Dosage: UNK
     Dates: start: 20080701, end: 20080901
  7. NAPROXEN (ALEVE) [Concomitant]
     Indication: MUSCLE SPASMS
  8. FEXOFENADINE [Concomitant]
     Dosage: 180 MG, QD
     Route: 048
     Dates: start: 20080822
  9. IBUPROFEN [Concomitant]
     Indication: BACK PAIN
     Dosage: UNK
     Dates: start: 20000101, end: 20100101
  10. ALLEGRA [Concomitant]
  11. SERTRALINE HYDROCHLORIDE [Concomitant]
     Dosage: 50 MG, QD
     Route: 048
     Dates: start: 20080821

REACTIONS (4)
  - THROMBOSIS [None]
  - FEAR [None]
  - PULMONARY EMBOLISM [None]
  - PAIN [None]
